FAERS Safety Report 13868997 (Version 1)
Quarter: 2017Q3

REPORT INFORMATION
  Report Type: Spontaneous
  Country: DE (occurrence: DE)
  Receive Date: 20170815
  Receipt Date: 20170815
  Transmission Date: 20171127
  Serious: Yes (Death)
  Sender: FDA-Public Use
  Company Number: PHHY2017DE119339

PATIENT
  Age: 40 Year

DRUGS (2)
  1. DABRAFENIB [Suspect]
     Active Substance: DABRAFENIB
     Indication: LUNG DISORDER
     Dosage: UNK
     Route: 065
     Dates: start: 201403
  2. TRAMETINIB [Suspect]
     Active Substance: TRAMETINIB
     Indication: LUNG DISORDER
     Dosage: UNK
     Route: 065
     Dates: start: 201404

REACTIONS (10)
  - Cardiac hypertrophy [Fatal]
  - Arthropathy [Unknown]
  - Fatigue [Unknown]
  - Cardiomegaly [Fatal]
  - Pulmonary oedema [Fatal]
  - Pyrexia [Unknown]
  - Cardiac failure [Fatal]
  - Arrhythmia [Fatal]
  - Myocarditis [Fatal]
  - Chills [Unknown]
